FAERS Safety Report 9150607 (Version 1)
Quarter: 2013Q1

REPORT INFORMATION
  Report Type: Spontaneous
  Country: US (occurrence: None)
  Receive Date: 20130201
  Receipt Date: 20130201
  Transmission Date: 20140127
  Serious: Yes (Life-Threatening, Hospitalization, Other)
  Sender: FDA-Public Use
  Company Number: 2013P1001176

PATIENT
  Age: 60 Year
  Sex: Female

DRUGS (3)
  1. AMLODIPINE [Suspect]
     Indication: HYPERTENSION
     Route: 048
  2. METOPROLOL [Concomitant]
  3. ASPIRIN [Concomitant]

REACTIONS (9)
  - Lactic acidosis [None]
  - Small intestinal obstruction [None]
  - Blood pressure decreased [None]
  - Ileus paralytic [None]
  - Shock [None]
  - Toxicity to various agents [None]
  - Overdose [None]
  - Respiratory failure [None]
  - Treatment noncompliance [None]
